FAERS Safety Report 22176028 (Version 1)
Quarter: 2023Q2

REPORT INFORMATION
  Report Type: Spontaneous
  Country: US (occurrence: US)
  Receive Date: 20230405
  Receipt Date: 20230405
  Transmission Date: 20230721
  Serious: Yes (Death)
  Sender: FDA-Public Use
  Company Number: US-HQ SPECIALTY-US-2023INT000039

PATIENT

DRUGS (3)
  1. CISPLATIN [Suspect]
     Active Substance: CISPLATIN
     Indication: Cholangiocarcinoma
     Dosage: 25 MG/M2, DAYS 1 AND 8 OF A 21-DAY CYCLE
     Route: 042
  2. SILMITASERTIB [Suspect]
     Active Substance: SILMITASERTIB
     Indication: Cholangiocarcinoma
     Dosage: 1000 MG/M2, BID, ON DAYS 0, 1, 2, 7, 8, AND 9
     Route: 048
  3. GEMCITABINE [Suspect]
     Active Substance: GEMCITABINE
     Indication: Cholangiocarcinoma
     Dosage: 1000 MG/M2, ON DAYS 1 AND 8 OF A 21-DAY CYCLE
     Route: 042

REACTIONS (1)
  - Cerebral infarction [Fatal]
